FAERS Safety Report 22623899 (Version 2)
Quarter: 2023Q4

REPORT INFORMATION
  Report Type: Spontaneous
  Country: US (occurrence: US)
  Receive Date: 20230621
  Receipt Date: 20231220
  Transmission Date: 20240109
  Serious: No
  Sender: FDA-Public Use
  Company Number: US-PROVENTION BIO, INC.-US-PRAG-23-00020

PATIENT
  Age: 8 Year
  Sex: Female
  Weight: 28.4 kg

DRUGS (14)
  1. TZIELD [Suspect]
     Active Substance: TEPLIZUMAB-MZWV
     Indication: Diabetes prophylaxis
     Dosage: 65 MICROGRAM/SQ. METER, SINGLE
     Route: 042
     Dates: start: 20230403, end: 20230403
  2. TZIELD [Suspect]
     Active Substance: TEPLIZUMAB-MZWV
     Dosage: 125 MICROGRAM/SQ. METER, SINGLE
     Route: 042
     Dates: start: 20230404, end: 20230404
  3. TZIELD [Suspect]
     Active Substance: TEPLIZUMAB-MZWV
     Dosage: 250 MICROGRAM/SQ. METER, SINGLE
     Route: 042
     Dates: start: 20230405, end: 20230405
  4. TZIELD [Suspect]
     Active Substance: TEPLIZUMAB-MZWV
     Dosage: 500 MICROGRAM/SQ. METER, SINGLE
     Route: 042
     Dates: start: 20230406, end: 20230406
  5. TZIELD [Suspect]
     Active Substance: TEPLIZUMAB-MZWV
     Dosage: 1030 MICROGRAM/SQ. METER, SINGLE
     Route: 042
     Dates: start: 20230407, end: 20230407
  6. TZIELD [Suspect]
     Active Substance: TEPLIZUMAB-MZWV
     Dosage: 1030 MICROGRAM/SQ. METER, SINGLE
     Route: 042
     Dates: start: 20230408, end: 20230408
  7. TZIELD [Suspect]
     Active Substance: TEPLIZUMAB-MZWV
     Dosage: 1030 MICROGRAM/SQ. METER, SINGLE
     Route: 042
     Dates: start: 20230409, end: 20230409
  8. TZIELD [Suspect]
     Active Substance: TEPLIZUMAB-MZWV
     Dosage: 1030 MICROGRAM/SQ. METER, SINGLE
     Route: 042
     Dates: start: 20230410, end: 20230410
  9. TZIELD [Suspect]
     Active Substance: TEPLIZUMAB-MZWV
     Dosage: 1030 MICROGRAM/SQ. METER, SINGLE
     Route: 042
     Dates: start: 20230411, end: 20230411
  10. TZIELD [Suspect]
     Active Substance: TEPLIZUMAB-MZWV
     Dosage: 1030 MICROGRAM/SQ. METER, SINGLE
     Route: 042
     Dates: start: 20230412, end: 20230412
  11. TZIELD [Suspect]
     Active Substance: TEPLIZUMAB-MZWV
     Dosage: 1030 MICROGRAM/SQ. METER, SINGLE
     Route: 042
     Dates: start: 20230413, end: 20230413
  12. TZIELD [Suspect]
     Active Substance: TEPLIZUMAB-MZWV
     Dosage: 1030 MICROGRAM/SQ. METER, SINGLE
     Route: 042
     Dates: start: 20230414, end: 20230414
  13. TZIELD [Suspect]
     Active Substance: TEPLIZUMAB-MZWV
     Dosage: 999.1 MICROGRAM/SQ. METER, SINGLE
     Route: 042
     Dates: start: 20230415, end: 20230415
  14. TZIELD [Suspect]
     Active Substance: TEPLIZUMAB-MZWV
     Dosage: 999.1 MICROGRAM/SQ. METER, SINGLE
     Route: 042
     Dates: start: 20230416, end: 20230416

REACTIONS (6)
  - Hypoglycaemia [Unknown]
  - Lymphocyte count decreased [Unknown]
  - Nausea [Unknown]
  - Neutrophil count decreased [Unknown]
  - Fatigue [Recovered/Resolved]
  - Rash [Recovered/Resolved]

NARRATIVE: CASE EVENT DATE: 20230401
